FAERS Safety Report 5040695-5 (Version None)
Quarter: 2006Q2

REPORT INFORMATION
  Report Type: 
  Country: None (occurrence: None)
  Receive Date: 20060630
  Receipt Date: 20060630
  Transmission Date: 20061013
  Serious: No
  Sender: FDA-Public Use
  Company Number: None

PATIENT
  Age: 54 Year
  Sex: Female
  Weight: 84.8226 kg

DRUGS (2)
  1. FENTANYL [Suspect]
     Indication: INTERVERTEBRAL DISC DISORDER
     Dosage: 200MCG Q 3 DAYS
  2. FENTANYL [Suspect]
     Indication: NEUROPATHY
     Dosage: 200MCG Q 3 DAYS

REACTIONS (2)
  - OEDEMA PERIPHERAL [None]
  - RASH [None]
